FAERS Safety Report 11720144 (Version 3)
Quarter: 2015Q4

REPORT INFORMATION
  Report Type: Spontaneous
  Country: IT (occurrence: IT)
  Receive Date: 20151110
  Receipt Date: 20151125
  Transmission Date: 20160304
  Serious: Yes (Death, Hospitalization, Other)
  Sender: FDA-Public Use
  Company Number: IT-OTSUKA-2015_012290

PATIENT
  Age: 67 Year
  Sex: Male
  Weight: 70 kg

DRUGS (2)
  1. ABILIFY MAINTENA [Suspect]
     Active Substance: ARIPIPRAZOLE
     Indication: AGITATION
     Dosage: 800 MG- ADMINISTERED 2 VIALS OF ABILIFY MAINTENA 400 MG ON THE SAME DAY
     Route: 030
     Dates: start: 20151013, end: 20151013
  2. DELORAZEPAM [Concomitant]
     Active Substance: DELORAZEPAM
     Indication: PRODUCT USED FOR UNKNOWN INDICATION
     Dosage: UNK
     Route: 065

REACTIONS (8)
  - Intentional product misuse [Unknown]
  - Urinary tract obstruction [Recovered/Resolved]
  - Akathisia [Not Recovered/Not Resolved]
  - Off label use [Unknown]
  - Respiratory arrest [Fatal]
  - Wrong drug administered [Unknown]
  - Muscle rigidity [Not Recovered/Not Resolved]
  - Overdose [Unknown]

NARRATIVE: CASE EVENT DATE: 20151013
